FAERS Safety Report 6525720-4 (Version None)
Quarter: 2009Q4

REPORT INFORMATION
  Report Type: 
  Country: None (occurrence: None)
  Receive Date: 20091214
  Receipt Date: 20090109
  Transmission Date: 20100525
  Serious: Yes (Other)
  Sender: FDA-Public Use
  Company Number: 607374

PATIENT
  Sex: Male

DRUGS (2)
  1. PEGASYS [Suspect]
     Indication: HEPATITIS C
     Dates: start: 20080815, end: 20081128
  2. RIBAVIRIN [Suspect]
     Indication: HEPATITIS C
     Dates: start: 20080815, end: 20081128

REACTIONS (5)
  - ANAEMIA [None]
  - EYE PAIN [None]
  - INSOMNIA [None]
  - MOOD ALTERED [None]
  - THYROID DISORDER [None]
